FAERS Safety Report 20765516 (Version 1)
Quarter: 2022Q2

REPORT INFORMATION
  Report Type: Spontaneous
  Country: US (occurrence: US)
  Receive Date: 20220428
  Receipt Date: 20220428
  Transmission Date: 20220720
  Serious: No
  Sender: FDA-Public Use
  Company Number: US-SA-SAC20220425000199

PATIENT
  Sex: Female

DRUGS (10)
  1. DUPIXENT [Suspect]
     Active Substance: DUPILUMAB
     Indication: Dermatitis atopic
     Dosage: 300 MG, QOW
     Route: 058
     Dates: start: 20210219
  2. DULOXETINE [Concomitant]
     Active Substance: DULOXETINE
  3. GABAPENTIN [Concomitant]
     Active Substance: GABAPENTIN
  4. JARDIANCE [Concomitant]
     Active Substance: EMPAGLIFLOZIN
  5. METOPROLOL [Concomitant]
     Active Substance: METOPROLOL
  6. PEPCID [Concomitant]
     Active Substance: FAMOTIDINE
  7. OMEPRAZOLE [Concomitant]
     Active Substance: OMEPRAZOLE
  8. TRULICITY [Concomitant]
     Active Substance: DULAGLUTIDE
  9. MAGNESIUM [Concomitant]
     Active Substance: MAGNESIUM
  10. METHOCARBAMOL [Concomitant]
     Active Substance: METHOCARBAMOL

REACTIONS (1)
  - Headache [Not Recovered/Not Resolved]
